FAERS Safety Report 25028891 (Version 3)
Quarter: 2025Q3

REPORT INFORMATION
  Report Type: Report from Study
  Country: EU (occurrence: EU)
  Receive Date: 20250302
  Receipt Date: 20250731
  Transmission Date: 20251021
  Serious: Yes (Hospitalization, Other)
  Sender: AMGEN
  Company Number: EU-BEH-2025196939

PATIENT
  Age: 24 Year
  Sex: Female
  Weight: 70 kg

DRUGS (17)
  1. AVACOPAN [Suspect]
     Active Substance: AVACOPAN
     Indication: Anti-neutrophil cytoplasmic antibody positive vasculitis
     Dosage: 30 MG, BID
     Route: 048
     Dates: start: 20240909
  2. AVACOPAN [Suspect]
     Active Substance: AVACOPAN
     Dosage: 30 MG, BID
     Route: 048
     Dates: start: 20240927
  3. RITUXIMAB [Concomitant]
     Active Substance: RITUXIMAB
     Indication: Anti-neutrophil cytoplasmic antibody positive vasculitis
     Dosage: 375 MG/M2, OD
     Route: 040
     Dates: start: 20240831, end: 20240831
  4. RITUXIMAB [Concomitant]
     Active Substance: RITUXIMAB
     Route: 040
     Dates: start: 20240906, end: 20240906
  5. RITUXIMAB [Concomitant]
     Active Substance: RITUXIMAB
     Route: 040
     Dates: start: 20240913, end: 20240913
  6. RITUXIMAB [Concomitant]
     Active Substance: RITUXIMAB
     Route: 040
     Dates: start: 20240919, end: 20240919
  7. RITUXIMAB [Concomitant]
     Active Substance: RITUXIMAB
     Route: 040
     Dates: start: 20250331, end: 20250331
  8. PREDNISOLONE [Concomitant]
     Active Substance: PREDNISOLONE
     Indication: Product used for unknown indication
     Dosage: 135 MG, OD
     Dates: start: 20240802, end: 20240802
  9. PREDNISOLONE [Concomitant]
     Active Substance: PREDNISOLONE
     Dosage: 75 MG, OD
     Route: 065
     Dates: start: 20240802, end: 20240808
  10. PREDNISOLONE [Concomitant]
     Active Substance: PREDNISOLONE
     Dosage: 20 MG, OD
     Route: 048
     Dates: start: 20240809, end: 20240908
  11. PREDNISOLONE [Concomitant]
     Active Substance: PREDNISOLONE
     Dosage: 250 MG, OD
     Route: 065
     Dates: start: 20240829, end: 20240831
  12. TORSEMIDE [Concomitant]
     Active Substance: TORSEMIDE
     Indication: Anti-neutrophil cytoplasmic antibody positive vasculitis
     Dosage: 100 MG, OD
     Route: 048
     Dates: start: 20240828
  13. CHLORTHALIDONE [Concomitant]
     Active Substance: CHLORTHALIDONE
     Indication: Anti-neutrophil cytoplasmic antibody positive vasculitis
     Dosage: 25 MG, OD
     Route: 048
     Dates: start: 20240828
  14. RAMIPRIL [Concomitant]
     Active Substance: RAMIPRIL
     Indication: Anti-neutrophil cytoplasmic antibody positive vasculitis
     Dosage: 5 MG, BID
     Route: 048
     Dates: start: 20240828
  15. FOLIC ACID [Concomitant]
     Active Substance: FOLIC ACID
     Indication: Product used for unknown indication
     Dosage: 5 MG, OD
     Route: 048
     Dates: start: 20240909
  16. COTRIMOXAZOLE [Concomitant]
     Active Substance: SULFAMETHOXAZOLE\TRIMETHOPRIM
     Indication: Anti-neutrophil cytoplasmic antibody positive vasculitis
     Dosage: 480 MG, TIW
     Route: 048
     Dates: start: 20240909
  17. FOLIC ACID [Concomitant]
     Active Substance: FOLIC ACID
     Indication: Anti-neutrophil cytoplasmic antibody positive vasculitis
     Dosage: 5 MG, OD
     Route: 065
     Dates: start: 20240909

REACTIONS (3)
  - Azotaemia [Recovered/Resolved]
  - Peritoneal dialysis [Not Recovered/Not Resolved]
  - Abdominal pain upper [Recovered/Resolved]

NARRATIVE: CASE EVENT DATE: 20240928
